FAERS Safety Report 7743704-5 (Version None)
Quarter: 2011Q3

REPORT INFORMATION
  Report Type: 
  Country: None (occurrence: None)
  Receive Date: 20110912
  Receipt Date: 20110906
  Transmission Date: 20111222
  Serious: Yes (Hospitalization)
  Sender: FDA-Public Use
  Company Number: FR-MERCK-1109FRA00030

PATIENT
  Age: 64 Year
  Sex: Male

DRUGS (10)
  1. MESALAMINE [Suspect]
     Route: 048
     Dates: start: 20110701, end: 20110725
  2. CICLESONIDE [Concomitant]
     Route: 065
  3. ZOCOR [Suspect]
     Indication: HYPERCHOLESTEROLAEMIA
     Route: 048
     Dates: end: 20110801
  4. FORMOTEROL FUMARATE [Concomitant]
     Route: 065
  5. HELICIDINE [Concomitant]
     Indication: VIRAL INFECTION
     Route: 065
     Dates: start: 20110717
  6. LEVOFLOXACIN [Suspect]
     Indication: LUNG INFECTION
     Route: 048
     Dates: start: 20110721, end: 20110801
  7. AMOXICILLIN AND CLAVULANATE POTASSIUM [Suspect]
     Indication: LUNG INFECTION
     Route: 048
     Dates: start: 20110722, end: 20110726
  8. ACETAMINOPHEN [Concomitant]
     Indication: VIRAL INFECTION
     Route: 065
     Dates: start: 20110717
  9. ACETYLCYSTEINE AND BENZALKONIUM CHLORIDE AND TUAMINOHEPTANE SULFATE [Concomitant]
     Indication: VIRAL INFECTION
     Route: 065
     Dates: start: 20110717
  10. TETRAZEPAM [Suspect]
     Indication: MYALGIA
     Route: 048
     Dates: start: 20110724, end: 20110802

REACTIONS (5)
  - CYTOLYTIC HEPATITIS [None]
  - RASH ERYTHEMATOUS [None]
  - ARTHRALGIA [None]
  - PYREXIA [None]
  - DRUG HYPERSENSITIVITY [None]
